FAERS Safety Report 4825042-3 (Version None)
Quarter: 2005Q4

REPORT INFORMATION
  Report Type: 
  Country: None (occurrence: None)
  Receive Date: 20051109
  Receipt Date: 20051109
  Transmission Date: 20060501
  Serious: Yes (Life-Threatening, Hospitalization)
  Sender: FDA-Public Use
  Company Number: None

PATIENT
  Age: 82 Year
  Sex: Male
  Weight: 109 kg

DRUGS (13)
  1. MACUGEN [Suspect]
     Indication: MACULAR DEGENERATION
     Dates: start: 20050922
  2. LIDOCAINE (1%) INJECTION; LEVOFLOXACIN OPHTHALMIC SOLUTION (QUIXIN) [Suspect]
     Indication: MACULAR DEGENERATION
     Dates: start: 20050922
  3. PERCOCET [Concomitant]
  4. DILTIAZEM HCL [Concomitant]
  5. FUROSEMIDE [Concomitant]
  6. GLYBURIDE [Concomitant]
  7. LISINOPRIL [Concomitant]
  8. METFORMIN HCL [Concomitant]
  9. OXYBUTYNIN [Concomitant]
  10. RABEPRAZOLE SODIUM [Concomitant]
  11. SIMVASTATIN [Concomitant]
  12. TERAZOSIN [Concomitant]
  13. TOBRADEX [Concomitant]

REACTIONS (2)
  - ANGIONEUROTIC OEDEMA [None]
  - HYPERSENSITIVITY [None]
